FAERS Safety Report 15811891 (Version 1)
Quarter: 2019Q1

REPORT INFORMATION
  Report Type: Spontaneous
  Country: US (occurrence: US)
  Receive Date: 20190111
  Receipt Date: 20190111
  Transmission Date: 20190417
  Serious: Yes (Other)
  Sender: FDA-Public Use
  Company Number: US-GLAXOSMITHKLINE-US2018235007

PATIENT
  Age: 68 Year
  Sex: Male

DRUGS (1)
  1. SENSODYNE EXTRA WHITENING [Suspect]
     Active Substance: POTASSIUM NITRATE\SODIUM FLUORIDE
     Indication: SENSITIVITY OF TEETH
     Dosage: UNK
     Dates: end: 20181227

REACTIONS (8)
  - Gingival pain [Recovered/Resolved]
  - Paraesthesia [Recovered/Resolved]
  - Adverse drug reaction [Recovered/Resolved]
  - Pneumonia [Unknown]
  - Dry throat [Recovered/Resolved]
  - Dyspnoea [Recovered/Resolved]
  - Dry mouth [Recovered/Resolved]
  - Toothache [Recovering/Resolving]
